FAERS Safety Report 25213330 (Version 1)
Quarter: 2025Q2

REPORT INFORMATION
  Report Type: Spontaneous
  Country: JP (occurrence: JP)
  Receive Date: 20250418
  Receipt Date: 20250418
  Transmission Date: 20250717
  Serious: Yes (Hospitalization)
  Sender: PFIZER
  Company Number: JP-ONO-2025JP003969

PATIENT
  Age: 3 Decade
  Sex: Male

DRUGS (8)
  1. BRAFTOVI [Suspect]
     Active Substance: ENCORAFENIB
     Indication: Malignant melanoma
     Route: 048
     Dates: start: 202501
  2. BRAFTOVI [Suspect]
     Active Substance: ENCORAFENIB
     Route: 048
  3. BRAFTOVI [Suspect]
     Active Substance: ENCORAFENIB
     Route: 048
     Dates: start: 20250227
  4. MEKTOVI [Suspect]
     Active Substance: BINIMETINIB
     Indication: Malignant melanoma
     Route: 048
     Dates: start: 202501
  5. MEKTOVI [Suspect]
     Active Substance: BINIMETINIB
     Route: 048
  6. MEKTOVI [Suspect]
     Active Substance: BINIMETINIB
     Route: 048
     Dates: start: 20250227
  7. DABRAFENIB MESYLATE [Suspect]
     Active Substance: DABRAFENIB MESYLATE
     Indication: Malignant melanoma
     Dates: start: 20250220, end: 20250221
  8. TRAMETINIB DIMETHYL SULFOXIDE [Suspect]
     Active Substance: TRAMETINIB DIMETHYL SULFOXIDE
     Indication: Malignant melanoma
     Dates: start: 20250220, end: 20250221

REACTIONS (6)
  - Swelling face [Recovering/Resolving]
  - Erythema nodosum [Recovering/Resolving]
  - Nausea [Recovering/Resolving]
  - Decreased appetite [Recovering/Resolving]
  - Pyrexia [Unknown]
  - Stomatitis [Unknown]

NARRATIVE: CASE EVENT DATE: 20250101
